FAERS Safety Report 15569862 (Version 10)
Quarter: 2020Q1

REPORT INFORMATION
  Report Type: Spontaneous
  Country: US (occurrence: US)
  Receive Date: 20181031
  Receipt Date: 20200319
  Transmission Date: 20200409
  Serious: No
  Sender: FDA-Public Use
  Company Number: US-PFIZER INC-2018439959

PATIENT
  Age: 82 Year
  Sex: Female
  Weight: 78.93 kg

DRUGS (4)
  1. PREMARIN [Suspect]
     Active Substance: ESTROGENS, CONJUGATED
     Dosage: UNK
     Route: 067
     Dates: start: 201807
  2. PREMARIN [Suspect]
     Active Substance: ESTROGENS, CONJUGATED
     Indication: CYSTITIS
     Dosage: UNK (2 TO 3 TIME A WEEK)
     Route: 067
     Dates: start: 2012
  3. PREMARIN [Suspect]
     Active Substance: ESTROGENS, CONJUGATED
     Indication: URINARY TRACT INFECTION
     Dosage: UNK, 2X/WEEK (A SMALL AMOUNT ON THE TIP OF HER FINGER AND TO INSERT IT IN VAGINA, 2X/WEEK)
     Route: 067
     Dates: start: 2017
  4. PREMARIN [Suspect]
     Active Substance: ESTROGENS, CONJUGATED
     Indication: FUNGAL INFECTION
     Dosage: 0.5 G, DAILY
     Route: 067

REACTIONS (6)
  - Dyspareunia [Unknown]
  - Memory impairment [Unknown]
  - Product dispensing error [Recovered/Resolved]
  - Drug ineffective for unapproved indication [Not Recovered/Not Resolved]
  - Off label use [Not Recovered/Not Resolved]
  - Product prescribing issue [Recovered/Resolved]

NARRATIVE: CASE EVENT DATE: 201807
